FAERS Safety Report 5837362-4 (Version None)
Quarter: 2008Q3

REPORT INFORMATION
  Report Type: 
  Country: None (occurrence: None)
  Receive Date: 20080807
  Receipt Date: 20080731
  Transmission Date: 20090109
  Serious: Yes (Other)
  Sender: FDA-Public Use
  Company Number: US-ELI_LILLY_AND_COMPANY-US200808000177

PATIENT
  Sex: Female

DRUGS (1)
  1. HUMALOG [Suspect]

REACTIONS (9)
  - CATARACT OPERATION [None]
  - EYE DISORDER [None]
  - FALL [None]
  - NEUROPATHY PERIPHERAL [None]
  - PAIN [None]
  - POOR PERIPHERAL CIRCULATION [None]
  - RETINAL OPERATION [None]
  - SINGLE FUNCTIONAL KIDNEY [None]
  - VISUAL ACUITY REDUCED [None]
